FAERS Safety Report 19130146 (Version 2)
Quarter: 2021Q3

REPORT INFORMATION
  Report Type: Spontaneous
  Country: JP (occurrence: JP)
  Receive Date: 20210413
  Receipt Date: 20210721
  Transmission Date: 20211014
  Serious: Yes (Hospitalization, Other)
  Sender: FDA-Public Use
  Company Number: JP-ELI_LILLY_AND_COMPANY-JP202011010514

PATIENT
  Age: 73 Year
  Sex: Female
  Weight: 70 kg

DRUGS (12)
  1. AMLODIPINE [Concomitant]
     Active Substance: AMLODIPINE BESYLATE
     Dosage: 2.5 MG, DAILY
     Route: 048
  2. BIOFERMIN [BIFIDOBACTERIUM BIFIDUM] [Concomitant]
     Dosage: 1 DOSAGE FORM, TID
     Route: 048
  3. REBAMIPIDE [Concomitant]
     Active Substance: REBAMIPIDE
     Dosage: 100 MG, BID
  4. VERZENIO [Suspect]
     Active Substance: ABEMACICLIB
     Indication: BREAST CANCER RECURRENT
     Dosage: 100 MG, BID
     Route: 048
     Dates: start: 20200421, end: 202005
  5. FASLODEX [Suspect]
     Active Substance: FULVESTRANT
     Indication: BREAST CANCER RECURRENT
     Dosage: 500 MG, CYCLICAL
     Route: 030
     Dates: start: 20200421, end: 20201110
  6. LIMAPROST ALFADEX [Concomitant]
     Active Substance: LIMAPROST
     Dosage: 5 UG, TID
  7. CEFTRIAXONE SODIUM HYDRATE [Suspect]
     Active Substance: CEFTRIAXONE SODIUM
     Indication: CELLULITIS
     Dosage: UNK
     Route: 065
     Dates: start: 202005
  8. MUCOSOLVAN L [Concomitant]
     Active Substance: AMBROXOL HYDROCHLORIDE
     Dosage: 45 MG, DAILY
     Route: 048
  9. ONON [Concomitant]
     Active Substance: PRANLUKAST
     Dosage: 225 MG, BID
     Route: 048
  10. DECADRON [Concomitant]
     Active Substance: DEXAMETHASONE
     Dosage: 0.5 MG, BID
     Dates: start: 20200516, end: 20200518
  11. CELECOX [Concomitant]
     Active Substance: CELECOXIB
     Dosage: 100 MG, BID
  12. RUPAFIN [Concomitant]
     Active Substance: RUPATADINE FUMARATE
     Indication: SEASONAL ALLERGY
     Dosage: 10 MG, DAILY
     Dates: start: 20190326

REACTIONS (10)
  - Oral candidiasis [Not Recovered/Not Resolved]
  - Urticaria [Unknown]
  - Diabetes mellitus [Not Recovered/Not Resolved]
  - Cellulitis [Unknown]
  - Interstitial lung disease [Recovered/Resolved with Sequelae]
  - Embolism venous [Not Recovered/Not Resolved]
  - Malignant neoplasm progression [Unknown]
  - Herpes simplex [Unknown]
  - Hypokalaemia [Unknown]
  - Muscular weakness [Unknown]

NARRATIVE: CASE EVENT DATE: 2020
